FAERS Safety Report 5970348-8 (Version None)
Quarter: 2008Q4

REPORT INFORMATION
  Report Type: 
  Country: None (occurrence: None)
  Receive Date: 20081126
  Receipt Date: 20081119
  Transmission Date: 20090506
  Serious: Yes (Other)
  Sender: FDA-Public Use
  Company Number: US-PFIZER INC-2008098838

PATIENT
  Age: 55 Year
  Sex: Male
  Weight: 88.6 kg

DRUGS (3)
  1. ATORVASTATIN [Suspect]
     Dosage: DAILY DOSE:20MG
     Dates: start: 20040401, end: 20041115
  2. ATORVASTATIN [Suspect]
     Dosage: DAILY DOSE:10MG
     Dates: start: 20030401, end: 20040401
  3. TELITHROMYCIN [Suspect]
     Indication: SINUSITIS
     Dates: start: 20041101

REACTIONS (7)
  - ASTHENIA [None]
  - EYE PAIN [None]
  - FATIGUE [None]
  - HEADACHE [None]
  - HEPATITIS [None]
  - LIVER FUNCTION TEST ABNORMAL [None]
  - PYREXIA [None]
